FAERS Safety Report 6341409-9 (Version None)
Quarter: 2009Q3

REPORT INFORMATION
  Report Type: 
  Country: None (occurrence: None)
  Receive Date: 20090904
  Receipt Date: 20090827
  Transmission Date: 20100115
  Serious: Yes (Hospitalization)
  Sender: FDA-Public Use
  Company Number: BE-ELI_LILLY_AND_COMPANY-BE200906005799

PATIENT
  Sex: Male
  Weight: 70 kg

DRUGS (5)
  1. CYMBALTA [Suspect]
     Indication: DEPRESSION
     Dosage: 1 D/F, UNKNOWN
     Route: 048
     Dates: start: 20090201, end: 20090501
  2. TRAMADOL HCL [Concomitant]
     Dosage: 150 D/F, UNKNOWN
     Route: 065
  3. OMEPRAZOLE [Concomitant]
     Dosage: 20 D/F, UNKNOWN
     Route: 065
  4. ZOPICLONE [Concomitant]
     Dosage: UNK, UNKNOWN
     Route: 065
  5. TRAZOLAN [Concomitant]
     Dosage: UNK, UNKNOWN
     Route: 065

REACTIONS (1)
  - MANIA [None]
